FAERS Safety Report 15030165 (Version 2)
Quarter: 2018Q3

REPORT INFORMATION
  Report Type: Spontaneous
  Country: CA (occurrence: CA)
  Receive Date: 20180619
  Receipt Date: 20180725
  Transmission Date: 20181010
  Serious: Yes (Other)
  Sender: FDA-Public Use
  Company Number: CA-PFIZER INC-2018243076

PATIENT
  Age: 83 Year
  Sex: Male

DRUGS (1)
  1. SULFASALAZINE. [Suspect]
     Active Substance: SULFASALAZINE
     Dosage: 500 MG, UNK
     Dates: start: 20180502, end: 201805

REACTIONS (6)
  - Condition aggravated [Unknown]
  - Disease recurrence [Unknown]
  - Diarrhoea [Unknown]
  - Renal failure [Unknown]
  - Fatigue [Unknown]
  - Pancreatitis [Unknown]
